FAERS Safety Report 4541960-8 (Version None)
Quarter: 2004Q4

REPORT INFORMATION
  Report Type: 
  Country: None (occurrence: None)
  Receive Date: 20041227
  Receipt Date: 20041215
  Transmission Date: 20050328
  Serious: Yes (Death, Hospitalization)
  Sender: FDA-Public Use
  Company Number: AZAUS200400076

PATIENT
  Age: 83 Year
  Sex: Male
  Weight: 63 kg

DRUGS (5)
  1. VIDAZA [Suspect]
     Indication: MYELODYSPLASTIC SYNDROME
     Dosage: 127 MG (DAILY), SUBCUTANEOUS
     Route: 058
     Dates: start: 20040823, end: 20040825
  2. PROCRIT (ERYTHROPOIETIN) [Concomitant]
  3. NEUPOGEN [Concomitant]
  4. ZOLOFT [Concomitant]
  5. TARKA (UDRAMIL) [Concomitant]

REACTIONS (8)
  - BLOOD BILIRUBIN INCREASED [None]
  - BLOOD CREATININE INCREASED [None]
  - FEBRILE NEUTROPENIA [None]
  - FEELING ABNORMAL [None]
  - IMMUNOSUPPRESSION [None]
  - PANCYTOPENIA [None]
  - SEPSIS [None]
  - TRANSAMINASES INCREASED [None]
